FAERS Safety Report 4426162-8 (Version None)
Quarter: 2004Q3

REPORT INFORMATION
  Report Type: 
  Country: None (occurrence: None)
  Receive Date: 20040811
  Receipt Date: 20040727
  Transmission Date: 20050211
  Serious: Yes (Other)
  Sender: FDA-Public Use
  Company Number: USA040773876

PATIENT
  Age: 63 Year
  Sex: Female

DRUGS (1)
  1. EVISTA [Suspect]

REACTIONS (6)
  - BODY HEIGHT DECREASED [None]
  - FRACTURE [None]
  - HIP FRACTURE [None]
  - PAIN [None]
  - SPINAL FRACTURE [None]
  - WRIST FRACTURE [None]
